FAERS Safety Report 16876526 (Version 3)
Quarter: 2023Q4

REPORT INFORMATION
  Report Type: Spontaneous
  Country: US (occurrence: None)
  Receive Date: 20191002
  Receipt Date: 20231215
  Transmission Date: 20240110
  Serious: Yes (Hospitalization, Disabling, Other)
  Sender: FDA-Public Use
  Company Number: 2019SF36615

PATIENT
  Age: 14832 Day
  Sex: Female
  Weight: 137.4 kg

DRUGS (73)
  1. FARXIGA [Suspect]
     Active Substance: DAPAGLIFLOZIN PROPANEDIOL
     Indication: Type 2 diabetes mellitus
     Route: 048
     Dates: start: 201708, end: 201801
  2. FARXIGA [Suspect]
     Active Substance: DAPAGLIFLOZIN PROPANEDIOL
     Indication: Weight decreased
     Route: 048
     Dates: start: 201708, end: 201801
  3. FARXIGA [Suspect]
     Active Substance: DAPAGLIFLOZIN PROPANEDIOL
     Indication: Blood pressure decreased
     Route: 048
     Dates: start: 201708, end: 201801
  4. FARXIGA [Suspect]
     Active Substance: DAPAGLIFLOZIN PROPANEDIOL
     Indication: Type 2 diabetes mellitus
     Route: 048
     Dates: start: 20160224
  5. FARXIGA [Suspect]
     Active Substance: DAPAGLIFLOZIN PROPANEDIOL
     Indication: Weight decreased
     Route: 048
     Dates: start: 20160224
  6. FARXIGA [Suspect]
     Active Substance: DAPAGLIFLOZIN PROPANEDIOL
     Indication: Blood pressure decreased
     Route: 048
     Dates: start: 20160224
  7. FARXIGA [Suspect]
     Active Substance: DAPAGLIFLOZIN PROPANEDIOL
     Indication: Type 2 diabetes mellitus
     Route: 048
     Dates: start: 20171204
  8. FARXIGA [Suspect]
     Active Substance: DAPAGLIFLOZIN PROPANEDIOL
     Indication: Weight decreased
     Route: 048
     Dates: start: 20171204
  9. FARXIGA [Suspect]
     Active Substance: DAPAGLIFLOZIN PROPANEDIOL
     Indication: Blood pressure decreased
     Route: 048
     Dates: start: 20171204
  10. FARXIGA [Suspect]
     Active Substance: DAPAGLIFLOZIN PROPANEDIOL
     Indication: Type 2 diabetes mellitus
     Route: 048
     Dates: start: 20170815
  11. FARXIGA [Suspect]
     Active Substance: DAPAGLIFLOZIN PROPANEDIOL
     Indication: Weight decreased
     Route: 048
     Dates: start: 20170815
  12. FARXIGA [Suspect]
     Active Substance: DAPAGLIFLOZIN PROPANEDIOL
     Indication: Blood pressure decreased
     Route: 048
     Dates: start: 20170815
  13. FARXIGA [Suspect]
     Active Substance: DAPAGLIFLOZIN PROPANEDIOL
     Indication: Type 2 diabetes mellitus
     Route: 048
     Dates: start: 201708
  14. FARXIGA [Suspect]
     Active Substance: DAPAGLIFLOZIN PROPANEDIOL
     Indication: Weight decreased
     Route: 048
     Dates: start: 201708
  15. FARXIGA [Suspect]
     Active Substance: DAPAGLIFLOZIN PROPANEDIOL
     Indication: Blood pressure decreased
     Route: 048
     Dates: start: 201708
  16. GLUCOPHAGE [Concomitant]
     Active Substance: METFORMIN HYDROCHLORIDE
     Route: 065
     Dates: start: 20170815
  17. BACLOFEN [Concomitant]
     Active Substance: BACLOFEN
  18. ZESTRIL [Concomitant]
     Active Substance: LISINOPRIL
     Route: 065
     Dates: start: 20170815
  19. NEURONTIN [Concomitant]
     Active Substance: GABAPENTIN
     Route: 065
     Dates: start: 20170815
  20. CELEXA [Concomitant]
     Active Substance: CITALOPRAM HYDROBROMIDE
     Route: 065
     Dates: start: 20180107
  21. REGLAN [Concomitant]
     Active Substance: METOCLOPRAMIDE HYDROCHLORIDE
     Dosage: 10MG/2ML
     Route: 065
     Dates: start: 20170815
  22. TOUJEO [Concomitant]
     Active Substance: INSULIN GLARGINE
     Dates: start: 20170815
  23. HUMALOG [Concomitant]
     Active Substance: INSULIN LISPRO
     Route: 065
     Dates: start: 20170815
  24. BYDUREON [Concomitant]
     Active Substance: EXENATIDE
  25. VOLTAREN [Concomitant]
     Active Substance: DICLOFENAC SODIUM
     Route: 065
     Dates: start: 20170815
  26. TRAMADOL [Concomitant]
     Active Substance: TRAMADOL\TRAMADOL HYDROCHLORIDE
     Dates: start: 20170815
  27. AMOXICILLIN [Concomitant]
     Active Substance: AMOXICILLIN
  28. PROMETHAZINE [Concomitant]
     Active Substance: PROMETHAZINE HYDROCHLORIDE
  29. ACETAMINOPHEN\HYDROCODONE BITARTRATE [Concomitant]
     Active Substance: ACETAMINOPHEN\HYDROCODONE BITARTRATE
  30. RELION [Concomitant]
  31. DOXYCYCLINE [Concomitant]
     Active Substance: DOXYCYCLINE
  32. LOVASTATIN [Concomitant]
     Active Substance: LOVASTATIN
     Dates: start: 20170815
  33. GLIMEPIRIDE [Concomitant]
     Active Substance: GLIMEPIRIDE
  34. UNSPECIFIED INGREDIENT [Concomitant]
     Active Substance: UNSPECIFIED INGREDIENT
  35. JARDIANCE [Concomitant]
     Active Substance: EMPAGLIFLOZIN
  36. SUMATRIPTAN [Concomitant]
     Active Substance: SUMATRIPTAN
  37. SUDAFED [Concomitant]
     Active Substance: PSEUDOEPHEDRINE HYDROCHLORIDE
  38. AMPICILLIN [Concomitant]
     Active Substance: AMPICILLIN
     Route: 065
     Dates: start: 20180105
  39. SULBACTAM [Concomitant]
     Active Substance: SULBACTAM
     Route: 065
     Dates: start: 20180105
  40. FAMOTIDINE [Concomitant]
     Active Substance: FAMOTIDINE
     Route: 065
     Dates: start: 20180105
  41. VANCOCIN [Concomitant]
     Active Substance: VANCOMYCIN HYDROCHLORIDE
     Route: 065
     Dates: start: 20180105
  42. MORPHINE [Concomitant]
     Active Substance: MORPHINE
     Dosage: 2MG/ML
     Route: 065
     Dates: start: 20180105
  43. ZOFRAN [Concomitant]
     Active Substance: ONDANSETRON HYDROCHLORIDE
     Dosage: 4MG/2ML
     Route: 065
     Dates: start: 20180105
  44. UNASYN [Concomitant]
     Active Substance: AMPICILLIN SODIUM\SULBACTAM SODIUM
     Route: 065
     Dates: start: 20180105
  45. ACETAMINOPHEN\OXYCODONE HYDROCHLORIDE [Concomitant]
     Active Substance: ACETAMINOPHEN\OXYCODONE HYDROCHLORIDE
     Route: 065
     Dates: start: 20180105
  46. MIDAZOLAM [Concomitant]
     Active Substance: MIDAZOLAM
     Route: 065
     Dates: start: 20180105
  47. FENTANYL [Concomitant]
     Active Substance: FENTANYL\FENTANYL CITRATE
     Route: 065
     Dates: start: 20180105
  48. GLYCOPYRROLATE [Concomitant]
     Active Substance: GLYCOPYRROLATE
     Dosage: 0.2MG/ML
     Route: 065
     Dates: start: 20180105
  49. PROPOFOL [Concomitant]
     Active Substance: PROPOFOL
     Dosage: 10MG/ML
     Route: 065
     Dates: start: 20180105
  50. SUCCINYLCHOLINE [Concomitant]
     Active Substance: SUCCINYLCHOLINE
     Dosage: 20MG/ML
     Route: 065
     Dates: start: 20180105
  51. ZEMURON [Concomitant]
     Active Substance: ROCURONIUM BROMIDE
     Dosage: 10MG/5ML
     Route: 065
     Dates: start: 20180105
  52. XYLOCAINE [Concomitant]
     Active Substance: LIDOCAINE HYDROCHLORIDE
     Route: 065
     Dates: start: 20180105
  53. SULFAMETHOXAZOLE [Concomitant]
     Active Substance: SULFAMETHOXAZOLE
     Route: 065
     Dates: start: 20180109
  54. BENZONATATE [Concomitant]
     Active Substance: BENZONATATE
  55. IBUPROFEN [Concomitant]
     Active Substance: IBUPROFEN
  56. FLUCONAZOLE [Concomitant]
     Active Substance: FLUCONAZOLE
  57. TRIAMCINOLONE [Concomitant]
     Active Substance: TRIAMCINOLONE
  58. CITALOPRAM [Concomitant]
     Active Substance: CITALOPRAM HYDROBROMIDE
     Dates: start: 20170815
  59. ALPRAZOLAM [Concomitant]
     Active Substance: ALPRAZOLAM
     Dates: start: 20170815
  60. PIOGLILAZONE [Concomitant]
     Dates: start: 20170815
  61. HYDROCHLOROTHIAZIDE\LISINOPRIL [Concomitant]
     Active Substance: HYDROCHLOROTHIAZIDE\LISINOPRIL
     Dates: start: 20170815
  62. DICLOFENAC SODIUM [Concomitant]
     Active Substance: DICLOFENAC\DICLOFENAC SODIUM
     Dates: start: 20170815
  63. CETIRIZINE [Concomitant]
     Active Substance: CETIRIZINE HYDROCHLORIDE
     Dates: start: 20170815
  64. METFORMIN HYDROCHLORIDE [Concomitant]
     Active Substance: METFORMIN HYDROCHLORIDE
     Dates: start: 20170815
  65. PREDNISONE [Concomitant]
     Active Substance: PREDNISONE
     Dates: start: 20170815
  66. OSENI [Concomitant]
     Active Substance: ALOGLIPTIN BENZOATE\PIOGLITAZONE HYDROCHLORIDE
     Dates: start: 20170815
  67. PENICILLIN V [Concomitant]
     Active Substance: PENICILLIN V
     Dates: start: 20170815
  68. POTASSIUM [Concomitant]
     Active Substance: POTASSIUM
     Dates: start: 20170815
  69. TRIMETHOPRIM [Concomitant]
     Active Substance: TRIMETHOPRIM
     Dates: start: 20170815
  70. ACTOS [Concomitant]
     Active Substance: PIOGLITAZONE HYDROCHLORIDE
  71. DICLOFENAC POTASSIUM [Concomitant]
     Active Substance: DICLOFENAC POTASSIUM
  72. BUSPAR [Concomitant]
     Active Substance: BUSPIRONE HYDROCHLORIDE
  73. DEXAMETHASONE [Concomitant]
     Active Substance: DEXAMETHASONE

REACTIONS (8)
  - Perirectal abscess [Unknown]
  - Tooth abscess [Unknown]
  - Necrosis [Unknown]
  - Fournier^s gangrene [Unknown]
  - Anxiety [Unknown]
  - Genital abscess [Unknown]
  - Necrotising fasciitis [Unknown]
  - Anal abscess [Unknown]

NARRATIVE: CASE EVENT DATE: 20160608
